FAERS Safety Report 18935735 (Version 3)
Quarter: 2024Q3

REPORT INFORMATION
  Report Type: Report from Study
  Country: AT (occurrence: AT)
  Receive Date: 20210225
  Receipt Date: 20240703
  Transmission Date: 20241016
  Serious: Yes (Hospitalization, Other)
  Sender: CELLTRION
  Company Number: AT-CELLTRION INC.-2021AT002176

PATIENT

DRUGS (16)
  1. HERCEPTIN [Suspect]
     Active Substance: TRASTUZUMAB
     Indication: HER2 positive breast cancer
     Dosage: 6 MG/KG EVERY 3 WEEKS (SUBSEQUENT DOSE ON 21 JAN 2020; DATE OF MOST RECENT DOSE OF TRASTUZUMAB PRIOR
     Route: 042
  2. TRASTUZUMAB [Suspect]
     Active Substance: TRASTUZUMAB
     Indication: Breast cancer
     Dosage: 6 MG/KG EVERY 3 WEEKS (SUBSEQUENT DOSE ON 21 JAN 2020; DATE OF MOST RECENT DOSE OF TRASTUZUMAB PRIOR
     Route: 042
     Dates: start: 20170912
  3. CARBOPLATIN [Suspect]
     Active Substance: CARBOPLATIN
     Indication: Breast cancer
     Dosage: 528 MG EVERY 3 WEEKS (DATE OF MOST RECENT DOSE OF CARBOPLATIN PRIOR TO THE EVENT ONSET: 23 OCT 2017)
     Route: 042
     Dates: start: 20170912
  4. FLUOROURACIL [Suspect]
     Active Substance: FLUOROURACIL
     Indication: Breast cancer
     Dosage: 500 MG/M2 EVERY 3 WEEKS (SUBSEQUENT DOSE ON 10 JUL 2018; DATE OF MOST RECENT DOSE OF 5-FLUOROURACIL
     Route: 042
     Dates: start: 20180529
  5. PERTUZUMAB [Suspect]
     Active Substance: PERTUZUMAB
     Indication: Breast cancer
     Dosage: 420 MG EVERY 3 WEEKS (SUBSEQUENT DOSE ON 23 OCT 2017; DATE OF MOST RECENT DOSE OF PERTUZUMAB PRIOR T
     Route: 042
     Dates: start: 20170912
  6. CYCLOPHOSPHAMIDE [Suspect]
     Active Substance: CYCLOPHOSPHAMIDE
     Indication: Breast cancer
     Dosage: 500 MG/M2 EVERY 3 WEEKS (DATE OF MOST RECENT DOSE OF CYCLOPHOSPHAMIDE PRIOR TO EVENT ONSET: 10 JUL 2
     Route: 042
     Dates: start: 20180529
  7. EPIRUBICIN [Suspect]
     Active Substance: EPIRUBICIN
     Indication: Breast cancer
     Dosage: 100 MG/M2 EVERY 3 WEEKS (DATE OF MOST RECENT DOSE OF EPIRUBICIN PRIOR TO EVENT ONSET: 10 JUL 2018)
     Route: 042
     Dates: start: 20180529
  8. DOCETAXEL [Suspect]
     Active Substance: DOCETAXEL\DOCETAXEL ANHYDROUS
     Indication: Breast cancer
     Dosage: 109 MG EVERY 3 WEEKS  (DATE OF MOST RECENT DOSE OF DOCETAXEL PRIOR TO THE EVENT ONSET: 23 OCT 2017)
     Route: 042
     Dates: start: 20170912
  9. NEULASTA [Concomitant]
     Active Substance: PEGFILGRASTIM
     Dosage: ONGOING = CHECKED
     Dates: start: 20170711
  10. ARANESP [Concomitant]
     Active Substance: DARBEPOETIN ALFA
     Dosage: ONGOING = CHECKED
     Dates: start: 20170711
  11. DEXAMETHASONE [Concomitant]
     Active Substance: DEXAMETHASONE
     Dosage: ONGOING = CHECKED
     Dates: start: 20170711
  12. ZOFRAN [Concomitant]
     Active Substance: ONDANSETRON HYDROCHLORIDE
     Dosage: ONGOING = CHECKED
     Dates: start: 20170611
  13. DOLOPHINE [Concomitant]
     Active Substance: METHADONE HYDROCHLORIDE
     Dosage: ONGOING = CHECKED
  14. EMEND [Concomitant]
     Active Substance: APREPITANT
     Dosage: ONGOING = CHECKED
     Dates: start: 20170711
  15. FILGRASTIM [Concomitant]
     Active Substance: FILGRASTIM
     Indication: Febrile neutropenia
     Dosage: ONGOING = NOT CHECKED
     Dates: start: 20200218, end: 20200224
  16. ELOMEL [Concomitant]
     Indication: Febrile neutropenia
     Dosage: ONGOING = NOT CHECKED
     Dates: start: 20200218, end: 20200224

REACTIONS (1)
  - Febrile neutropenia [Recovered/Resolved]

NARRATIVE: CASE EVENT DATE: 20200218
